FAERS Safety Report 24752175 (Version 1)
Quarter: 2024Q4

REPORT INFORMATION
  Report Type: Report from Study
  Country: CA (occurrence: CA)
  Receive Date: 20241219
  Receipt Date: 20241219
  Transmission Date: 20250115
  Serious: Yes (Hospitalization, Other)
  Sender: ALEXION PHARMACEUTICALS
  Company Number: CA-AstraZeneca-CH-00766499A

PATIENT
  Age: 71 Year

DRUGS (8)
  1. ANIFROLUMAB [Suspect]
     Active Substance: ANIFROLUMAB
     Indication: Systemic lupus erythematosus
     Route: 065
  2. ANIFROLUMAB [Suspect]
     Active Substance: ANIFROLUMAB
     Route: 065
  3. ANIFROLUMAB [Suspect]
     Active Substance: ANIFROLUMAB
     Route: 065
  4. ANIFROLUMAB [Suspect]
     Active Substance: ANIFROLUMAB
     Route: 065
  5. HYDROMORPHONE [Concomitant]
     Active Substance: HYDROMORPHONE
     Route: 065
  6. HYDROMORPHONE [Concomitant]
     Active Substance: HYDROMORPHONE
     Route: 065
  7. MORPHINE [Concomitant]
     Active Substance: MORPHINE
     Route: 065
  8. MORPHINE [Concomitant]
     Active Substance: MORPHINE
     Route: 065

REACTIONS (2)
  - Spinal cord infection [Unknown]
  - Malaise [Unknown]
